FAERS Safety Report 5725227-8 (Version None)
Quarter: 2008Q2

REPORT INFORMATION
  Report Type: 
  Country: None (occurrence: None)
  Receive Date: 20080501
  Receipt Date: 20080429
  Transmission Date: 20081010
  Serious: Yes (Hospitalization)
  Sender: FDA-Public Use
  Company Number: B0518831A

PATIENT
  Age: 53 Year
  Sex: Male

DRUGS (6)
  1. ZYBAN [Suspect]
     Dosage: 300MG PER DAY
     Route: 048
     Dates: start: 20080209, end: 20080301
  2. PREDNISOLONE [Concomitant]
     Dosage: 20MG PER DAY
     Route: 048
  3. SINGULAIR [Concomitant]
     Indication: ASTHMA
     Dosage: 10MG PER DAY
     Route: 048
  4. SERETIDE [Concomitant]
     Indication: ASTHMA
     Route: 055
  5. IMOVANE [Concomitant]
     Indication: SOMNOLENCE
     Dosage: 7.5MG PER DAY
     Route: 048
  6. ATROVENT COMP [Concomitant]
     Indication: ASTHMA
     Route: 055

REACTIONS (3)
  - PSORIASIS [None]
  - RASH GENERALISED [None]
  - RASH MACULAR [None]
